FAERS Safety Report 21856442 (Version 1)
Quarter: 2023Q1

REPORT INFORMATION
  Report Type: Spontaneous
  Country: JP (occurrence: JP)
  Receive Date: 20230112
  Receipt Date: 20230112
  Transmission Date: 20230417
  Serious: Yes (Other)
  Sender: FDA-Public Use
  Company Number: JP-PAIPHARMA-2023-JP-000025

PATIENT
  Age: 51 Year
  Sex: Female

DRUGS (1)
  1. PREDNISOLONE SODIUM PHOSPHATE [Suspect]
     Active Substance: PREDNISOLONE SODIUM PHOSPHATE
     Indication: Autoimmune haemolytic anaemia
     Dosage: 10 MG DAILY
     Route: 048
     Dates: start: 2016

REACTIONS (1)
  - Lymphoproliferative disorder [Recovered/Resolved]
